FAERS Safety Report 13485215 (Version 1)
Quarter: 2017Q2

REPORT INFORMATION
  Report Type: Other
  Country: US (occurrence: US)
  Receive Date: 20170425
  Receipt Date: 20170425
  Transmission Date: 20170830
  Serious: No
  Sender: FDA-Public Use
  Company Number: US-LUPIN PHARMACEUTICALS INC.-2017-01204

PATIENT
  Age: 49 Year
  Sex: Male
  Weight: 81.63 kg

DRUGS (3)
  1. AVALIDE [Concomitant]
     Active Substance: HYDROCHLOROTHIAZIDE\IRBESARTAN
     Indication: HYPERTENSION
     Dosage: UNK
     Route: 065
  2. IRBESARTAN AND HYDROCHLOROTHIAZIDE TABLETS USP 150 MG/12.5 MG [Suspect]
     Active Substance: HYDROCHLOROTHIAZIDE\IRBESARTAN
     Indication: HYPERTENSION
     Dosage: 2 DF, QD
     Route: 048
     Dates: start: 20170205
  3. IRBESARTAN AND HYDROCHLOROTHIAZIDE TABLETS USP 150 MG/12.5 MG [Suspect]
     Active Substance: HYDROCHLOROTHIAZIDE\IRBESARTAN
     Dosage: REDUCED DOSE
     Route: 048
     Dates: end: 20170207

REACTIONS (8)
  - Product quality issue [None]
  - Impaired work ability [None]
  - Dizziness [Recovered/Resolved]
  - Coordination abnormal [Recovered/Resolved]
  - Memory impairment [Recovered/Resolved]
  - Impaired driving ability [None]
  - Disturbance in attention [Recovered/Resolved]
  - Miosis [Recovered/Resolved]

NARRATIVE: CASE EVENT DATE: 20170205
